FAERS Safety Report 8153785-5 (Version None)
Quarter: 2012Q1

REPORT INFORMATION
  Report Type: 
  Country: None (occurrence: None)
  Receive Date: 20120221
  Receipt Date: 20120109
  Transmission Date: 20120608
  Serious: Yes (Hospitalization)
  Sender: FDA-Public Use
  Company Number: AU-GLAXOSMITHKLINE-B0774696A

PATIENT
  Sex: Female

DRUGS (2)
  1. TYKERB [Suspect]
     Indication: BREAST CANCER METASTATIC
     Dosage: 250MG FIVE TIMES PER DAY
     Route: 048
     Dates: start: 20111129
  2. XELODA [Suspect]
     Indication: BREAST CANCER METASTATIC
     Dosage: 500MG SIX TIMES PER DAY
     Route: 048
     Dates: start: 20111129

REACTIONS (3)
  - ORAL PAIN [None]
  - LOWER RESPIRATORY TRACT INFECTION [None]
  - DEVICE RELATED INFECTION [None]
